FAERS Safety Report 25193711 (Version 2)
Quarter: 2025Q2

REPORT INFORMATION
  Report Type: Report from Study
  Country: CA (occurrence: CA)
  Receive Date: 20250414
  Receipt Date: 20250430
  Transmission Date: 20250716
  Serious: Yes (Other)
  Sender: ABBVIE
  Company Number: CA-ABBVIE-6216339

PATIENT
  Age: 56 Year
  Sex: Female

DRUGS (68)
  1. VENETOCLAX [Suspect]
     Active Substance: VENETOCLAX
     Indication: Acute myeloid leukaemia
     Dosage: SITE PRACTICE FOR CYCLE 1 DOSING IS TO DO A RAMP UP - DAY 1 ?100 MG, DAY 2 200 MG, DAY 3 ONWARDS ...
     Route: 048
     Dates: start: 20240816, end: 20240816
  2. VENETOCLAX [Suspect]
     Active Substance: VENETOCLAX
     Indication: Acute myeloid leukaemia
     Dosage: RAMP UP DOSING FOR CYCLE 1 DAY 2 AT SITE IS 100 MG FOR PATIENTS RECEIVING CONCOMITANT FLUCONAZOLE
     Route: 048
     Dates: start: 20240817, end: 20240817
  3. VENETOCLAX [Suspect]
     Active Substance: VENETOCLAX
     Indication: Acute myeloid leukaemia
     Dosage: INCREASE: RAMP UP DOSING FOR CYCLE 1 DAY 3 FOR PATIENTS RECEIVING CONCOMITANT FLUCONAZOLE IS 200 ...
     Route: 048
     Dates: start: 20240818, end: 20240910
  4. AZACITIDINE [Suspect]
     Active Substance: AZACITIDINE
     Indication: Acute myeloid leukaemia
     Route: 065
     Dates: start: 20240816, end: 20240822
  5. SENNA  S [Concomitant]
     Indication: Constipation prophylaxis
     Route: 048
     Dates: start: 20240810, end: 20240813
  6. SENNA  S [Concomitant]
     Indication: Constipation prophylaxis
     Route: 048
     Dates: start: 20240815, end: 20240908
  7. VENLAFAXINE [Concomitant]
     Active Substance: VENLAFAXINE HYDROCHLORIDE
     Indication: Depression
     Route: 048
     Dates: start: 20240910
  8. VITAMIN D [Concomitant]
     Active Substance: VITAMIN D NOS
     Indication: Routine health maintenance
     Dosage: 1 TAB
     Route: 048
     Dates: start: 20240910
  9. CALCIUM CARBONATE [Concomitant]
     Active Substance: CALCIUM CARBONATE
     Indication: Routine health maintenance
     Dosage: 1TAB
     Route: 048
     Dates: start: 20240910
  10. LASIX [Concomitant]
     Active Substance: FUROSEMIDE
     Indication: Cardiac failure congestive
     Route: 048
     Dates: start: 20240910, end: 20240910
  11. LASIX [Concomitant]
     Active Substance: FUROSEMIDE
     Indication: Cardiac failure congestive
     Route: 042
     Dates: start: 20240911, end: 20240911
  12. LASIX [Concomitant]
     Active Substance: FUROSEMIDE
     Indication: Cardiac failure congestive
     Route: 042
     Dates: start: 20240912, end: 20240912
  13. ACETAMINOPHEN [Concomitant]
     Active Substance: ACETAMINOPHEN
     Indication: Pain
     Route: 048
     Dates: start: 20240812, end: 20240911
  14. MORPHINE [Concomitant]
     Active Substance: MORPHINE
     Indication: Pain
     Route: 037
  15. VALACYCLOVIR [Concomitant]
     Active Substance: VALACYCLOVIR HYDROCHLORIDE
     Indication: Antiviral prophylaxis
     Route: 048
     Dates: start: 20240815, end: 20240912
  16. FLUCONAZOLE [Concomitant]
     Active Substance: FLUCONAZOLE
     Indication: Antifungal prophylaxis
     Route: 048
     Dates: start: 20240815, end: 20240905
  17. NYSTATIN [Concomitant]
     Active Substance: NYSTATIN
     Indication: Mucosal inflammation
     Route: 050
     Dates: start: 20240816, end: 20240822
  18. MAGNESIUM SULFATE [Concomitant]
     Active Substance: MAGNESIUM SULFATE
     Indication: Hypomagnesaemia
     Route: 042
     Dates: start: 20240816, end: 20240816
  19. MAGNESIUM SULFATE [Concomitant]
     Active Substance: MAGNESIUM SULFATE
     Indication: Hypomagnesaemia
     Route: 042
     Dates: start: 20240911, end: 20240911
  20. MAGNESIUM SULFATE [Concomitant]
     Active Substance: MAGNESIUM SULFATE
     Indication: Hypomagnesaemia
     Route: 042
     Dates: start: 20240912, end: 20240912
  21. COVID-19 vaccine mRNA [Concomitant]
     Indication: COVID-19 prophylaxis
  22. COVID-19 vaccine mRNA [Concomitant]
     Indication: COVID-19 prophylaxis
  23. COVID-19 vaccine mRNA [Concomitant]
     Indication: COVID-19 prophylaxis
  24. PIPERACILLIN AND TAZOBACTAM [Concomitant]
     Active Substance: PIPERACILLIN SODIUM\TAZOBACTAM SODIUM
     Indication: Pneumonia
     Route: 042
     Dates: start: 20240810, end: 20240830
  25. PANTOPRAZOLE [Concomitant]
     Active Substance: PANTOPRAZOLE
     Indication: Antacid therapy
     Route: 048
     Dates: start: 20240815, end: 20240908
  26. PANTOPRAZOLE [Concomitant]
     Active Substance: PANTOPRAZOLE
     Indication: Antacid therapy
     Route: 048
     Dates: start: 20240909, end: 20240910
  27. ONDANSETRON [Concomitant]
     Active Substance: ONDANSETRON
     Indication: Prophylaxis of nausea and vomiting
     Route: 048
     Dates: start: 20240816, end: 20240822
  28. DEXAMETHASONE [Concomitant]
     Active Substance: DEXAMETHASONE
     Indication: Prophylaxis of nausea and vomiting
     Route: 048
     Dates: start: 20240816, end: 20240816
  29. MELATONIN [Concomitant]
     Active Substance: MELATONIN
     Indication: Insomnia
     Route: 048
     Dates: start: 20240828, end: 20240829
  30. DILAUDID [Concomitant]
     Active Substance: HYDROMORPHONE HYDROCHLORIDE
     Indication: Pain in extremity
     Route: 048
     Dates: start: 20240829, end: 20240910
  31. DILAUDID [Concomitant]
     Active Substance: HYDROMORPHONE HYDROCHLORIDE
     Indication: Pain in extremity
     Dosage: 0.25-0.5 MG
     Route: 048
     Dates: start: 20240911, end: 20240912
  32. LOPERAMIDE [Concomitant]
     Active Substance: LOPERAMIDE
     Indication: Diarrhoea
     Dosage: 1TAB
     Route: 048
     Dates: start: 20240830, end: 20240831
  33. LOPERAMIDE [Concomitant]
     Active Substance: LOPERAMIDE
     Indication: Diarrhoea
     Dosage: 1TAB
     Route: 048
     Dates: start: 20240831, end: 20240904
  34. MILK OF MAGNESIA [Concomitant]
     Active Substance: MAGNESIUM HYDROXIDE
     Indication: Dyspepsia
     Route: 048
     Dates: start: 20240908, end: 20240908
  35. METOCLOPRAMIDE [Concomitant]
     Active Substance: METOCLOPRAMIDE
     Indication: Nausea
     Route: 048
     Dates: start: 20240910, end: 20240911
  36. CLOBETASOL [Concomitant]
     Active Substance: CLOBETASOL
     Indication: Peripheral venous disease
     Route: 061
     Dates: start: 20240911, end: 20240912
  37. NOREPINEPHRINE [Concomitant]
     Active Substance: NOREPINEPHRINE
     Indication: Blood pressure management
     Route: 042
     Dates: start: 20240911, end: 20240912
  38. NITROGLYCERIN [Concomitant]
     Active Substance: NITROGLYCERIN
     Indication: Hypertension
     Dates: start: 20240911, end: 20240911
  39. LABETALOL [Concomitant]
     Active Substance: LABETALOL
     Indication: Hypertension
     Dosage: 10-20  MG
     Route: 042
     Dates: start: 20240911, end: 20240911
  40. ALBUMIN HUMAN [Concomitant]
     Active Substance: ALBUMIN HUMAN
     Indication: Hypoalbuminaemia
     Dates: start: 20240911, end: 20240911
  41. COMBIVENT [Concomitant]
     Active Substance: ALBUTEROL SULFATE\IPRATROPIUM BROMIDE
     Indication: Dyspnoea
     Dosage: 2 PUFFS
     Route: 055
     Dates: start: 20240810, end: 20240824
  42. RIVAROXABAN [Concomitant]
     Active Substance: RIVAROXABAN
     Indication: Peripheral vascular disorder
     Dosage: 1 TAB
     Route: 048
     Dates: start: 20240810
  43. ATORVASTATIN [Concomitant]
     Active Substance: ATORVASTATIN
     Indication: Hypercholesterolaemia
     Route: 048
     Dates: start: 20240910
  44. PHENYTOIN [Concomitant]
     Active Substance: PHENYTOIN
     Indication: Seizure
     Route: 048
     Dates: start: 20240814
  45. PREGABALIN [Concomitant]
     Active Substance: PREGABALIN
     Indication: Pain
     Route: 048
  46. HYDROCORTISONE [Concomitant]
     Active Substance: HYDROCORTISONE
     Indication: Mucosal inflammation
     Route: 048
     Dates: start: 20240816, end: 20240816
  47. LIDOCAINE [Concomitant]
     Active Substance: LIDOCAINE
     Indication: Stomatitis
     Route: 061
     Dates: start: 20240816, end: 20240816
  48. DIMENHYDRINATE [Concomitant]
     Active Substance: DIMENHYDRINATE
     Indication: Nausea
     Dosage: 25-50 MG
     Route: 042
     Dates: start: 20240909, end: 20240909
  49. BUTYLSCOPOLAMINE BROMIDE [Concomitant]
     Active Substance: BUTYLSCOPOLAMINE BROMIDE
     Indication: Nausea
     Route: 048
     Dates: start: 20240824, end: 20240908
  50. SODIUM PHOSPHATE [Concomitant]
     Active Substance: SODIUM PHOSPHATE
     Indication: Hypophosphataemia
     Route: 042
     Dates: start: 20240823, end: 20240823
  51. VANCOMYCIN [Concomitant]
     Active Substance: VANCOMYCIN
     Indication: Stasis dermatitis
     Route: 042
     Dates: start: 20240825, end: 20240825
  52. VANCOMYCIN [Concomitant]
     Active Substance: VANCOMYCIN
     Indication: Stasis dermatitis
     Route: 042
     Dates: start: 20240825, end: 20240828
  53. VANCOMYCIN [Concomitant]
     Active Substance: VANCOMYCIN
     Indication: Stasis dermatitis
     Route: 042
     Dates: start: 20240910, end: 20240910
  54. TRIAMCINOLONE [Concomitant]
     Active Substance: TRIAMCINOLONE
     Indication: Stasis dermatitis
     Route: 061
     Dates: start: 20240826, end: 20240905
  55. POTASSIUM CHLORIDE [Concomitant]
     Active Substance: POTASSIUM CHLORIDE
     Indication: Hypokalaemia
     Route: 042
     Dates: start: 20240829, end: 20240829
  56. POTASSIUM CHLORIDE [Concomitant]
     Active Substance: POTASSIUM CHLORIDE
     Indication: Hypokalaemia
     Route: 042
     Dates: start: 20240911, end: 20240911
  57. POTASSIUM CHLORIDE [Concomitant]
     Active Substance: POTASSIUM CHLORIDE
     Indication: Hypokalaemia
     Route: 048
     Dates: start: 20240902, end: 20240902
  58. POTASSIUM CHLORIDE [Concomitant]
     Active Substance: POTASSIUM CHLORIDE
     Indication: Hypokalaemia
     Route: 061
     Dates: start: 20240827, end: 20240827
  59. POTASSIUM CHLORIDE [Concomitant]
     Active Substance: POTASSIUM CHLORIDE
     Indication: Hypokalaemia
     Route: 061
     Dates: start: 20240831, end: 20240831
  60. POTASSIUM CHLORIDE [Concomitant]
     Active Substance: POTASSIUM CHLORIDE
     Indication: Hypokalaemia
     Route: 061
     Dates: start: 20240909, end: 20240909
  61. POTASSIUM CHLORIDE [Concomitant]
     Active Substance: POTASSIUM CHLORIDE
     Indication: Hypokalaemia
     Route: 061
     Dates: start: 20240912, end: 20240912
  62. SODIUM CHLORIDE [Concomitant]
     Active Substance: SODIUM CHLORIDE
     Indication: Hypotension
     Route: 042
     Dates: start: 20240911, end: 20240911
  63. SODIUM CHLORIDE [Concomitant]
     Active Substance: SODIUM CHLORIDE
     Indication: Hypotension
     Route: 042
     Dates: start: 20240911, end: 20240911
  64. MEROPENEM [Concomitant]
     Active Substance: MEROPENEM
     Indication: Sepsis
     Route: 042
     Dates: start: 20240911, end: 20240911
  65. CIPROFLOXACIN [Concomitant]
     Active Substance: CIPROFLOXACIN
     Indication: Sepsis
     Route: 042
     Dates: start: 20240912, end: 20240912
  66. MIDAZOLAM [Concomitant]
     Active Substance: MIDAZOLAM
     Indication: Loss of personal independence in daily activities
     Dosage: 0-4 MG
     Dates: start: 20240912
  67. HYDREA [Concomitant]
     Active Substance: HYDROXYUREA
     Indication: Tumour lysis syndrome
     Dates: start: 20240811, end: 20240811
  68. OXYGEN [Concomitant]
     Active Substance: OXYGEN
     Indication: Chronic obstructive pulmonary disease
     Route: 055

REACTIONS (1)
  - Cardiac failure congestive [Not Recovered/Not Resolved]

NARRATIVE: CASE EVENT DATE: 20240911
